FAERS Safety Report 16512749 (Version 4)
Quarter: 2020Q1

REPORT INFORMATION
  Report Type: Spontaneous
  Country: US (occurrence: US)
  Receive Date: 20190702
  Receipt Date: 20200205
  Transmission Date: 20200409
  Serious: Yes (Other)
  Sender: FDA-Public Use
  Company Number: US-SA-2019SA178388

PATIENT
  Sex: Male

DRUGS (23)
  1. PREDNISONE. [Concomitant]
     Active Substance: PREDNISONE
  2. FERROUS SULFATE. [Concomitant]
     Active Substance: FERROUS SULFATE
  3. METHOCARBAMOL. [Concomitant]
     Active Substance: METHOCARBAMOL
  4. THEOPHYLLINE [Concomitant]
     Active Substance: THEOPHYLLINE ANHYDROUS
  5. ULORIC [Concomitant]
     Active Substance: FEBUXOSTAT
  6. COMBIVENT RESPIMAT [Concomitant]
     Active Substance: ALBUTEROL SULFATE\IPRATROPIUM BROMIDE
  7. CALCIUM CITRATE [Concomitant]
     Active Substance: CALCIUM CITRATE
  8. GLIMEPIRIDE. [Concomitant]
     Active Substance: GLIMEPIRIDE
  9. PSYLLIUM FIBRE [Concomitant]
  10. TIZANIDINE [TIZANIDINE HYDROCHLORIDE] [Concomitant]
     Active Substance: TIZANIDINE HYDROCHLORIDE
  11. DUPIXENT [Suspect]
     Active Substance: DUPILUMAB
     Indication: PRODUCT USED FOR UNKNOWN INDICATION
     Dosage: 200 MG/1.14ML, QOW
     Route: 058
     Dates: start: 201905
  12. FLUTICASONE. [Concomitant]
     Active Substance: FLUTICASONE
  13. INCRUSE ELLIPTA [Concomitant]
     Active Substance: UMECLIDINIUM BROMIDE
  14. IPRATROPIUM [Concomitant]
     Active Substance: IPRATROPIUM
  15. DOXYCYCLINE. [Concomitant]
     Active Substance: DOXYCYCLINE
  16. PRIMIDONE. [Concomitant]
     Active Substance: PRIMIDONE
  17. ZOLPIDEM [Concomitant]
     Active Substance: ZOLPIDEM TARTRATE
  18. ADVAIR UNSPEC [Concomitant]
  19. AZELASTINE [AZELASTINE HYDROCHLORIDE] [Concomitant]
  20. GABAPENTIN. [Concomitant]
     Active Substance: GABAPENTIN
  21. IMIPRAMINE [IMIPRAMINE HYDROCHLORIDE] [Concomitant]
  22. METFORMIN HYDROCHLORIDE. [Concomitant]
     Active Substance: METFORMIN HYDROCHLORIDE
  23. NITROGLYCERIN. [Concomitant]
     Active Substance: NITROGLYCERIN

REACTIONS (7)
  - Cardiac failure congestive [Unknown]
  - Asthenia [Unknown]
  - Injection site bruising [Unknown]
  - Dysphonia [Unknown]
  - Cough [Unknown]
  - Dyspnoea [Unknown]
  - Sleep apnoea syndrome [Unknown]

NARRATIVE: CASE EVENT DATE: 2019
